FAERS Safety Report 18419799 (Version 1)
Quarter: 2020Q4

REPORT INFORMATION
  Report Type: Report from Study
  Country: US (occurrence: US)
  Receive Date: 20201023
  Receipt Date: 20201023
  Transmission Date: 20210114
  Serious: Yes (Other)
  Sender: FDA-Public Use
  Company Number: US-BIOGEN-2020BI00937773

PATIENT
  Age: 52 Year
  Sex: Male

DRUGS (1)
  1. VUMERITY [Suspect]
     Active Substance: DIROXIMEL FUMARATE
     Indication: MULTIPLE SCLEROSIS
     Route: 048
     Dates: start: 20200818

REACTIONS (3)
  - Atrial fibrillation [Recovered/Resolved]
  - Night sweats [Recovered/Resolved]
  - Appendicitis noninfective [Unknown]

NARRATIVE: CASE EVENT DATE: 20201019
